FAERS Safety Report 18136740 (Version 5)
Quarter: 2021Q4

REPORT INFORMATION
  Report Type: Spontaneous
  Country: US (occurrence: US)
  Receive Date: 20200811
  Receipt Date: 20211213
  Transmission Date: 20220303
  Serious: Yes (Other)
  Sender: FDA-Public Use
  Company Number: US-PFIZER INC-2020306052

PATIENT
  Sex: Female

DRUGS (4)
  1. LEVOXYL [Suspect]
     Active Substance: LEVOTHYROXINE SODIUM
     Indication: Thyroid disorder
     Dosage: 12.5 UG (50 UG TABLET)
     Dates: start: 2016
  2. LEVOXYL [Suspect]
     Active Substance: LEVOTHYROXINE SODIUM
     Dosage: 50 UG (100 MCG PILLS FROM THE BOTTLE AND SPLITTING THEM)
     Dates: start: 2019
  3. LEVOXYL [Suspect]
     Active Substance: LEVOTHYROXINE SODIUM
     Dosage: UNK
     Dates: start: 2020
  4. LEVOXYL [Suspect]
     Active Substance: LEVOTHYROXINE SODIUM
     Dosage: UNK
     Dates: start: 202101

REACTIONS (9)
  - Breast cancer [Unknown]
  - Agitation [Unknown]
  - Tachycardia [Unknown]
  - Feeling abnormal [Unknown]
  - Stress [Unknown]
  - Reaction to excipient [Unknown]
  - Therapeutic product effect decreased [Unknown]
  - Poor quality product administered [Unknown]
  - Product odour abnormal [Unknown]

NARRATIVE: CASE EVENT DATE: 20190101
